FAERS Safety Report 5265045-0 (Version None)
Quarter: 2007Q1

REPORT INFORMATION
  Report Type: 
  Country: None (occurrence: None)
  Receive Date: 20061121
  Receipt Date: 20060727
  Transmission Date: 20070707
  Serious: No
  Sender: FDA-Public Use
  Company Number: TPA2006A01227

PATIENT
  Age: 53 Year
  Sex: Female

DRUGS (3)
  1. ROZEREM [Suspect]
     Dosage: 8 MG, PER ORAL
     Route: 048
  2. ZOLOFT [Suspect]
     Indication: DEPRESSION
  3. OXYCONTIN [Concomitant]

REACTIONS (6)
  - ANXIETY [None]
  - DIZZINESS [None]
  - DYSPHORIA [None]
  - HALLUCINATION, VISUAL [None]
  - SOMNOLENCE [None]
  - TINNITUS [None]
